FAERS Safety Report 15758198 (Version 14)
Quarter: 2021Q2

REPORT INFORMATION
  Report Type: Spontaneous
  Country: CA (occurrence: CA)
  Receive Date: 20181225
  Receipt Date: 20210525
  Transmission Date: 20210716
  Serious: Yes (Hospitalization, Other)
  Sender: FDA-Public Use
  Company Number: CA-CELLTRION INC.-2018CA024841

PATIENT

DRUGS (4)
  1. INFLECTRA [Suspect]
     Active Substance: INFLIXIMAB-DYYB
     Dosage: 5 MG/KG, EVERY 0, 2, 6 WEEKS, THEN EVERY 8 WEEKS
     Route: 041
     Dates: start: 20210304
  2. INFLECTRA [Suspect]
     Active Substance: INFLIXIMAB-DYYB
     Indication: CROHN^S DISEASE
     Dosage: 400 MG, EVERY 0, 2, 6 WEEKS, THEN EVERY 8 WEEKS
     Route: 041
     Dates: start: 20181203
  3. METAMUCIL THERAPY FOR REGULARITY [Concomitant]
     Active Substance: PSYLLIUM HUSK
     Dosage: 1 DF
  4. INFLECTRA [Suspect]
     Active Substance: INFLIXIMAB-DYYB
     Dosage: 5 MG/KG, EVERY 0, 2, 6 WEEKS, THEN EVERY 8 WEEKS
     Route: 041
     Dates: start: 20210325, end: 20210325

REACTIONS (22)
  - Arthralgia [Unknown]
  - Feeling hot [Unknown]
  - Off label use [Unknown]
  - Condition aggravated [Unknown]
  - Somnolence [Unknown]
  - Muscular weakness [Unknown]
  - Tachycardia [Unknown]
  - Blood pressure increased [Unknown]
  - Off label use [Unknown]
  - Pain [Unknown]
  - Poor venous access [Unknown]
  - Cyanosis [Unknown]
  - Abdominal pain [Unknown]
  - Dyspnoea [Unknown]
  - Pulmonary embolism [Unknown]
  - Diarrhoea [Unknown]
  - Fall [Unknown]
  - Hyperhidrosis [Unknown]
  - Heart rate increased [Unknown]
  - Oxygen saturation abnormal [Unknown]
  - Intentional product use issue [Unknown]
  - Gait inability [Unknown]

NARRATIVE: CASE EVENT DATE: 20210325
